FAERS Safety Report 9179799 (Version 2)
Quarter: 2013Q2

REPORT INFORMATION
  Report Type: Spontaneous
  Country: JP (occurrence: JP)
  Receive Date: 20121029
  Receipt Date: 20130410
  Transmission Date: 20140414
  Serious: Yes (Death)
  Sender: FDA-Public Use
  Company Number: JP-ROCHE-1150062

PATIENT
  Sex: Female

DRUGS (15)
  1. RITUXIMAB [Suspect]
     Indication: DIFFUSE LARGE B-CELL LYMPHOMA
     Dosage: 500 MG/BODY
     Route: 042
     Dates: start: 20070413
  2. RITUXIMAB [Suspect]
     Dosage: 500 MG/BODY
     Route: 042
     Dates: start: 20070515
  3. RITUXIMAB [Suspect]
     Dosage: 500 MG/BODY
     Route: 042
     Dates: start: 20070531
  4. RITUXIMAB [Suspect]
     Dosage: 500 MG/BODY
     Route: 042
     Dates: start: 20070621
  5. RITUXIMAB [Suspect]
     Dosage: 500 MG/BODY
     Route: 042
     Dates: start: 20070709
  6. RITUXIMAB [Suspect]
     Dosage: 500 MG/BODY
     Route: 042
     Dates: start: 20070724
  7. RITUXIMAB [Suspect]
     Dosage: 500 MG/BODY
     Route: 042
     Dates: start: 20070927
  8. RITUXIMAB [Suspect]
     Dosage: 500 MG/BODY
     Route: 042
     Dates: start: 20070501
  9. ENDOXAN [Suspect]
     Indication: DIFFUSE LARGE B-CELL LYMPHOMA
     Route: 042
     Dates: start: 20070331, end: 20070725
  10. ADRIACIN [Suspect]
     Indication: DIFFUSE LARGE B-CELL LYMPHOMA
     Route: 042
     Dates: start: 20070331, end: 20070725
  11. ONCOVIN [Suspect]
     Indication: DIFFUSE LARGE B-CELL LYMPHOMA
     Route: 042
     Dates: start: 20070331, end: 20070725
  12. PREDNISOLONE [Suspect]
     Indication: DIFFUSE LARGE B-CELL LYMPHOMA
     Route: 048
     Dates: start: 20070601, end: 20070626
  13. DEXART [Concomitant]
     Dosage: 20 MG SINGLE 30 MINUTES BEFORE EACH RITUXIMAB INFUSION IV PREMEDICATION FOR RITUXIMAB INFUSION
     Route: 042
     Dates: start: 20070413, end: 20070927
  14. CALONAL [Concomitant]
     Dosage: 400 MG SINGLE 30 MINUTES BEFORE EACH RITUXIMAB INFUSION PO PREMEDICATION FOR RITUXIMAB INFUSION
     Route: 048
  15. NEOMALLERMIN-TR [Concomitant]
     Dosage: 6 MG SINGLE 30 MINUTES BEFORE EACH RITUXIMAB INFUSION
     Route: 048
     Dates: start: 20070413, end: 20070927

REACTIONS (2)
  - Hepatic failure [Fatal]
  - Hepatitis C [Fatal]
